FAERS Safety Report 23932296 (Version 1)
Quarter: 2024Q2

REPORT INFORMATION
  Report Type: Spontaneous
  Country: US (occurrence: None)
  Receive Date: 20240531
  Receipt Date: 20240531
  Transmission Date: 20240716
  Serious: Yes (Disabling)
  Sender: FDA-Public Use
  Company Number: None

PATIENT
  Age: 36 Year
  Sex: Male

DRUGS (1)
  1. FINASTERIDE [Suspect]
     Active Substance: FINASTERIDE
     Indication: Alopecia
     Dosage: OTHER QUANTITY : 1 TABLET(S);?FREQUENCY : DAILY;?
     Route: 048
     Dates: start: 20210104, end: 20210109

REACTIONS (17)
  - Fatigue [None]
  - Sleep disorder [None]
  - Insomnia [None]
  - Male sexual dysfunction [None]
  - Libido decreased [None]
  - Penis disorder [None]
  - Genital hypoaesthesia [None]
  - Affective disorder [None]
  - Apathy [None]
  - Muscular weakness [None]
  - Muscle atrophy [None]
  - Muscle twitching [None]
  - Memory impairment [None]
  - Brain fog [None]
  - Anxiety [None]
  - Depression [None]
  - Emotional disorder [None]

NARRATIVE: CASE EVENT DATE: 20210207
